FAERS Safety Report 4764534-2 (Version None)
Quarter: 2005Q3

REPORT INFORMATION
  Report Type: 
  Country: None (occurrence: None)
  Receive Date: 20050909
  Receipt Date: 20050803
  Transmission Date: 20060218
  Serious: Yes (Hospitalization, Disabling)
  Sender: FDA-Public Use
  Company Number: PHBS2005JP11407

PATIENT
  Age: 32 Year
  Sex: Male
  Weight: 65 kg

DRUGS (7)
  1. VOLTAREN [Suspect]
     Indication: PYREXIA
     Dosage: 25 MG, QD
     Route: 048
     Dates: start: 20050725, end: 20050726
  2. LOXONIN [Suspect]
     Indication: PYREXIA
     Dosage: 120 MG, QD
     Route: 048
     Dates: start: 20050726, end: 20050728
  3. TRANSAMIN [Suspect]
     Indication: NASOPHARYNGITIS
     Dosage: 1500 MG, QD
     Route: 048
     Dates: start: 20050725, end: 20050728
  4. MUCOSTA [Suspect]
     Indication: NASOPHARYNGITIS
     Dosage: 200 MG, QD
     Route: 048
     Dates: start: 20050726, end: 20050728
  5. FLOMOX [Suspect]
     Indication: PYREXIA
     Dosage: 200 MG, QD
     Route: 048
     Dates: start: 20050726, end: 20050728
  6. DASEN [Suspect]
     Indication: PYREXIA
     Dosage: 10 MG, QD
     Route: 048
     Dates: start: 20050725, end: 20050726
  7. PL GRAN. [Suspect]
     Indication: PYREXIA
     Dosage: 1 G, QD
     Route: 048
     Dates: start: 20050725, end: 20050726

REACTIONS (22)
  - ALANINE AMINOTRANSFERASE INCREASED [None]
  - ASPARTATE AMINOTRANSFERASE INCREASED [None]
  - BLOOD ALKALINE PHOSPHATASE INCREASED [None]
  - BLOOD CREATININE INCREASED [None]
  - BLOOD LACTATE DEHYDROGENASE INCREASED [None]
  - BLOOD UREA INCREASED [None]
  - CONDITION AGGRAVATED [None]
  - DRUG INEFFECTIVE [None]
  - GAMMA-GLUTAMYLTRANSFERASE INCREASED [None]
  - HAEMODIALYSIS [None]
  - HEPATIC FAILURE [None]
  - HEPATITIS ACUTE [None]
  - HEPATITIS VIRAL [None]
  - HEPATORENAL SYNDROME [None]
  - JAUNDICE [None]
  - LIVER DISORDER [None]
  - MALAISE [None]
  - OLIGURIA [None]
  - PHARYNGOLARYNGEAL PAIN [None]
  - PYREXIA [None]
  - RENAL DISORDER [None]
  - RENAL FAILURE CHRONIC [None]
